FAERS Safety Report 5120241-8 (Version None)
Quarter: 2006Q4

REPORT INFORMATION
  Report Type: 
  Country: None (occurrence: None)
  Receive Date: 20061002
  Receipt Date: 20061002
  Transmission Date: 20070319
  Serious: Yes (Life-Threatening)
  Sender: FDA-Public Use
  Company Number: None

PATIENT
  Age: 44 Year
  Sex: Male
  Weight: 60.3284 kg

DRUGS (4)
  1. CLINDAMYCIN HCL [Suspect]
     Indication: ABSCESS
     Dosage: 900MG 1 IV DRIP
     Route: 041
     Dates: start: 20060918, end: 20060918
  2. CLINDAMYCIN HCL [Suspect]
     Indication: INFECTION
     Dosage: 900MG 1 IV DRIP
     Route: 041
     Dates: start: 20060918, end: 20060918
  3. CLINDAMYCIN HCL [Suspect]
     Indication: ABSCESS
     Dosage: 300MG 2 PO
     Route: 048
     Dates: start: 20060918, end: 20060919
  4. CLINDAMYCIN HCL [Suspect]
     Indication: INFECTION
     Dosage: 300MG 2 PO
     Route: 048
     Dates: start: 20060918, end: 20060919

REACTIONS (15)
  - ANGINA PECTORIS [None]
  - ASTHENIA [None]
  - BLOOD PRESSURE DECREASED [None]
  - CHILLS [None]
  - COLD SWEAT [None]
  - DYSGEUSIA [None]
  - FATIGUE [None]
  - FEELING ABNORMAL [None]
  - HEART RATE INCREASED [None]
  - HEART RATE IRREGULAR [None]
  - HYPERHIDROSIS [None]
  - ILL-DEFINED DISORDER [None]
  - NAUSEA [None]
  - PALLOR [None]
  - PARAESTHESIA [None]
